FAERS Safety Report 6292654-2 (Version None)
Quarter: 2009Q3

REPORT INFORMATION
  Report Type: 
  Country: None (occurrence: None)
  Receive Date: 20090731
  Receipt Date: 20090728
  Transmission Date: 20100115
  Serious: Yes (Death, Hospitalization)
  Sender: FDA-Public Use
  Company Number: BR-ASTRAZENECA-2009UW21318

PATIENT
  Age: 89 Year
  Sex: Male

DRUGS (3)
  1. SEROQUEL [Suspect]
     Indication: HALLUCINATION
     Route: 048
     Dates: start: 20080601
  2. FUROSEMIDE [Concomitant]
     Indication: HYPERTENSION
     Route: 048
     Dates: start: 20060101
  3. PURAN [Concomitant]
     Indication: HYPOTHYROIDISM
     Route: 048
     Dates: start: 20060101

REACTIONS (4)
  - CARCINOID TUMOUR OF THE PROSTATE [None]
  - DECREASED APPETITE [None]
  - MULTI-ORGAN FAILURE [None]
  - RENAL FAILURE [None]
